FAERS Safety Report 4453147-8 (Version None)
Quarter: 2004Q3

REPORT INFORMATION
  Report Type: 
  Country: None (occurrence: None)
  Receive Date: 20040813
  Receipt Date: 20040426
  Transmission Date: 20050211
  Serious: No
  Sender: FDA-Public Use
  Company Number: S04-USA-02139-01

PATIENT
  Age: 79 Year
  Sex: Female
  Weight: 50.3493 kg

DRUGS (7)
  1. NAMENDA [Suspect]
     Indication: DEMENTIA
     Dosage: 10 MG QAM PO
     Route: 048
     Dates: start: 20040401
  2. NAMENDA [Suspect]
     Indication: DEMENTIA
     Dosage: 5 MG QHS PO
     Route: 048
     Dates: start: 20040401
  3. NEURONTIN [Concomitant]
  4. SEROQUEL [Concomitant]
  5. LEXAPRO [Concomitant]
  6. VITAMIN C [Concomitant]
  7. ZINC [Concomitant]

REACTIONS (1)
  - URINARY TRACT INFECTION PSEUDOMONAL [None]
